FAERS Safety Report 9312873 (Version 1)
Quarter: 2013Q2

REPORT INFORMATION
  Report Type: Report from Study
  Country: US (occurrence: US)
  Receive Date: 20130528
  Receipt Date: 20130528
  Transmission Date: 20140414
  Serious: Yes (Hospitalization)
  Sender: FDA-Public Use
  Company Number: US-US-EMD SERONO, INC.-7213152

PATIENT
  Age: 37 Year
  Sex: Female

DRUGS (3)
  1. REBIF [Suspect]
     Indication: MULTIPLE SCLEROSIS
     Route: 058
     Dates: start: 20081125, end: 201305
  2. MIRENA [Concomitant]
     Indication: CONTRACEPTION
  3. HEPARIN [Concomitant]
     Indication: DRUG INTERACTION

REACTIONS (2)
  - Pulmonary embolism [Recovering/Resolving]
  - Multiple sclerosis relapse [Recovered/Resolved]
